FAERS Safety Report 7652457-0 (Version None)
Quarter: 2011Q3

REPORT INFORMATION
  Report Type: 
  Country: None (occurrence: None)
  Receive Date: 20110728
  Receipt Date: 20110713
  Transmission Date: 20111222
  Serious: Yes (Death, Hospitalization)
  Sender: FDA-Public Use
  Company Number: ALP-11-05

PATIENT
  Age: 43 Year
  Sex: Female

DRUGS (4)
  1. CITALOPRAM HYDROBROMIDE [Concomitant]
  2. ZIPRASIDONE HYDROCHLORIDE [Concomitant]
  3. ALPRAZOLAM [Suspect]
     Dosage: 2MG/3X DAY;
  4. ZOLPIDEM [Concomitant]

REACTIONS (18)
  - HEART RATE INCREASED [None]
  - POSTURING [None]
  - THERAPEUTIC RESPONSE DECREASED [None]
  - INFECTION [None]
  - APNOEA [None]
  - DRUG WITHDRAWAL SYNDROME [None]
  - OVERDOSE [None]
  - MENTAL STATUS CHANGES [None]
  - ABNORMAL BEHAVIOUR [None]
  - HALLUCINATION [None]
  - TREMOR [None]
  - HYPERTENSION [None]
  - INSOMNIA [None]
  - CONVERSION DISORDER [None]
  - CYANOSIS [None]
  - INAPPROPRIATE SCHEDULE OF DRUG ADMINISTRATION [None]
  - BODY TEMPERATURE INCREASED [None]
  - PSYCHOTIC DISORDER [None]
